FAERS Safety Report 8421743-9 (Version None)
Quarter: 2012Q2

REPORT INFORMATION
  Report Type: 
  Country: None (occurrence: None)
  Receive Date: 20120608
  Receipt Date: 20120530
  Transmission Date: 20120825
  Serious: Yes (Death)
  Sender: FDA-Public Use
  Company Number: JP-US-EMD SERONO, INC.-7136499

PATIENT
  Age: 29 Year
  Sex: Female

DRUGS (1)
  1. SEROPHENE [Suspect]
     Indication: INFERTILITY
     Route: 048

REACTIONS (1)
  - INTRACRANIAL MENINGIOMA MALIGNANT [None]
